FAERS Safety Report 6007279-3 (Version None)
Quarter: 2008Q4

REPORT INFORMATION
  Report Type: 
  Country: None (occurrence: None)
  Receive Date: 20081217
  Receipt Date: 20080130
  Transmission Date: 20090506
  Serious: No
  Sender: FDA-Public Use
  Company Number: US-ASTRAZENECA-2008UW02187

PATIENT
  Age: 60 Year
  Sex: Male
  Weight: 83.9 kg

DRUGS (3)
  1. CRESTOR [Suspect]
     Route: 048
     Dates: start: 20070701
  2. ASPIRIN [Concomitant]
  3. NEXIUM [Concomitant]
     Route: 048

REACTIONS (1)
  - HICCUPS [None]
